FAERS Safety Report 19079133 (Version 2)
Quarter: 2022Q1

REPORT INFORMATION
  Report Type: Report from Study
  Country: US (occurrence: None)
  Receive Date: 20210331
  Receipt Date: 20220210
  Transmission Date: 20220423
  Serious: No
  Sender: FDA-Public Use
  Company Number: US-ORION CORPORATION ORION PHARMA-ENT 2020-0066

PATIENT
  Sex: Female

DRUGS (14)
  1. ENTACAPONE [Suspect]
     Active Substance: ENTACAPONE
     Indication: Product used for unknown indication
     Dosage: 2 DOSAGE UNIT (5X/DAY WITH RYTARY, 1X/DAY AT BEDTIME)
     Route: 065
     Dates: start: 202008, end: 2020
  2. ENTACAPONE [Suspect]
     Active Substance: ENTACAPONE
     Dosage: DOSE DECREASED?1 DOSAGE UNIT (5X/DAY WITH RYTARY, 1X/DAY AT BEDTIME)
     Route: 065
     Dates: start: 2020, end: 20200911
  3. GOCOVRI [Suspect]
     Active Substance: AMANTADINE
     Indication: Dyskinesia
     Dosage: STRENGTH: 137 MG?AT BEDTIME
     Route: 048
     Dates: start: 20200317, end: 2020
  4. GOCOVRI [Suspect]
     Active Substance: AMANTADINE
     Dosage: AT BEDTIME
     Route: 048
     Dates: start: 2020, end: 2020
  5. GOCOVRI [Suspect]
     Active Substance: AMANTADINE
     Dosage: AT BEDTIME
     Route: 048
     Dates: start: 2020
  6. DULOXETINE [Concomitant]
     Active Substance: DULOXETINE
     Route: 065
  7. NAPROXEN [Concomitant]
     Active Substance: NAPROXEN
     Route: 065
  8. RASAGILINE [Concomitant]
     Active Substance: RASAGILINE
     Route: 065
  9. RYTARY [Concomitant]
     Active Substance: CARBIDOPA\LEVODOPA
     Route: 065
  10. MULTIVITAMIN MINERALS [Concomitant]
     Indication: Vitamin supplementation
     Route: 065
  11. VITAMIN D3 [Concomitant]
     Active Substance: CHOLECALCIFEROL
     Indication: Vitamin supplementation
     Dosage: 1000 ENZYME UNIT
     Route: 065
  12. VITAMIN B12;FOLIC ACID [Concomitant]
     Indication: Vitamin supplementation
     Route: 065
     Dates: end: 2020
  13. FISH OIL [Concomitant]
     Active Substance: FISH OIL
     Indication: Supplementation therapy
     Route: 065
     Dates: end: 2020
  14. OGENTYS [Concomitant]
     Route: 065

REACTIONS (20)
  - Intentional dose omission [Unknown]
  - Intentional product use issue [Unknown]
  - Product dose omission issue [Unknown]
  - Treatment noncompliance [Unknown]
  - Rash [Recovered/Resolved]
  - Fall [Not Recovered/Not Resolved]
  - Musculoskeletal discomfort [Unknown]
  - Head discomfort [Unknown]
  - Constipation [Recovered/Resolved]
  - Tremor [Not Recovered/Not Resolved]
  - Gait disturbance [Not Recovered/Not Resolved]
  - Dyskinesia [Recovered/Resolved]
  - Eye discharge [Unknown]
  - Pain in extremity [Recovering/Resolving]
  - Back pain [Recovering/Resolving]
  - Swelling [Unknown]
  - Weight decreased [Not Recovered/Not Resolved]
  - Head injury [Unknown]
  - Somnolence [Unknown]
  - Unevaluable event [Unknown]

NARRATIVE: CASE EVENT DATE: 20200101
